FAERS Safety Report 8204202-8 (Version None)
Quarter: 2012Q1

REPORT INFORMATION
  Report Type: 
  Country: None (occurrence: None)
  Receive Date: 20120309
  Receipt Date: 20120223
  Transmission Date: 20120608
  Serious: Yes (Death, Life-Threatening, Hospitalization)
  Sender: FDA-Public Use
  Company Number: 2012SGN00046

PATIENT
  Age: 46 Year
  Sex: Female
  Weight: 71.7 kg

DRUGS (9)
  1. LASIX (FURSEMIDE SODIUM) [Concomitant]
  2. MEGACE [Concomitant]
  3. OXYCONTIN [Concomitant]
  4. PERCOCET [Concomitant]
  5. XANAX [Concomitant]
  6. EMLA [Concomitant]
  7. ADCETRIS [Suspect]
     Indication: HODGKIN'S DISEASE
     Dosage: Q21D, INTRAVENOUS
     Route: 042
     Dates: start: 20110922, end: 20111130
  8. ZOFRAN ODT (ONDANSETRON HYDROCHLORIDE) [Concomitant]
  9. BACTRIM [Concomitant]

REACTIONS (13)
  - HODGKIN'S DISEASE [None]
  - THROMBOCYTOPENIA [None]
  - PETECHIAE [None]
  - HYPOALBUMINAEMIA [None]
  - LIVER FUNCTION TEST ABNORMAL [None]
  - DYSPNOEA EXERTIONAL [None]
  - MALIGNANT PLEURAL EFFUSION [None]
  - ANAEMIA OF MALIGNANT DISEASE [None]
  - NEUTROPENIA [None]
  - OEDEMA [None]
  - CACHEXIA [None]
  - DEPRESSION [None]
  - DISEASE PROGRESSION [None]
